FAERS Safety Report 8773616 (Version 3)
Quarter: 2012Q4

REPORT INFORMATION
  Report Type: 
  Country: SE (occurrence: SE)
  Receive Date: 20120907
  Receipt Date: 20121108
  Transmission Date: 20130627
  Serious: Yes (Other)
  Sender: FDA-Public Use
  Company Number: SE-ROCHE-1118362

PATIENT
  Age: 63 Year
  Sex: Male

DRUGS (12)
  1. CYMEVENE [Suspect]
     Indication: CYTOMEGALOVIRUS INFECTION
     Route: 065
     Dates: start: 20120808, end: 20120817
  2. DALACIN [Concomitant]
  3. MIMPARA [Concomitant]
  4. OMEPRAZOLE [Concomitant]
  5. VALACICLOVIR [Concomitant]
  6. TACROLIMUS [Concomitant]
  7. PREDNISOLONE [Concomitant]
  8. MYCOSTATIN [Concomitant]
  9. ETALPHA [Concomitant]
  10. TROMBYL [Concomitant]
  11. CELLCEPT [Concomitant]
  12. ATENOLOL [Concomitant]

REACTIONS (3)
  - Diplopia [Not Recovered/Not Resolved]
  - Eye disorder [Not Recovered/Not Resolved]
  - Paresis [Not Recovered/Not Resolved]
